FAERS Safety Report 6072576-2 (Version None)
Quarter: 2009Q1

REPORT INFORMATION
  Report Type: 
  Country: None (occurrence: None)
  Receive Date: 20090210
  Receipt Date: 20090204
  Transmission Date: 20090719
  Serious: Yes (Hospitalization, Other)
  Sender: FDA-Public Use
  Company Number: US-ASTRAZENECA-2009UW03338

PATIENT
  Age: 23274 Day
  Sex: Male
  Weight: 82.6 kg

DRUGS (13)
  1. ATACAND HCT [Suspect]
     Route: 048
  2. NEXIUM [Suspect]
     Route: 048
  3. TOPROL-XL [Suspect]
     Route: 048
  4. ACCURETIC [Concomitant]
  5. LISINOPRIL [Concomitant]
     Route: 048
  6. NORVASC [Concomitant]
     Route: 048
  7. ISOSORB [Concomitant]
     Route: 048
  8. GLUTROL [Concomitant]
     Route: 048
  9. FUROSEMIDE [Concomitant]
     Route: 048
  10. POTASSIUM CHLORIDE [Concomitant]
     Route: 048
  11. LOPID [Concomitant]
     Route: 048
  12. CLONIDINE HCL [Concomitant]
     Route: 048
  13. ASPIRIN [Concomitant]
     Route: 048

REACTIONS (3)
  - BLINDNESS [None]
  - CARDIAC FAILURE [None]
  - DIABETES MELLITUS [None]
